FAERS Safety Report 4677495-1 (Version None)
Quarter: 2005Q2

REPORT INFORMATION
  Report Type: 
  Country: None (occurrence: None)
  Receive Date: 20050527
  Receipt Date: 20050527
  Transmission Date: 20051028
  Serious: Yes (Disabling)
  Sender: FDA-Public Use
  Company Number: None

PATIENT
  Sex: Male
  Weight: 86.637 kg

DRUGS (5)
  1. AMIODARONE  400MG [Suspect]
     Indication: APLASTIC ANAEMIA
     Dosage: 400MG  DAILY ORAL
     Route: 048
     Dates: start: 20020101, end: 20040927
  2. AMIODARONE  400MG [Suspect]
     Indication: ATRIAL FIBRILLATION
     Dosage: 400MG  DAILY ORAL
     Route: 048
     Dates: start: 20020101, end: 20040927
  3. ZOCOR [Concomitant]
  4. ZESTRIL [Concomitant]
  5. LASIX [Concomitant]

REACTIONS (1)
  - APLASTIC ANAEMIA [None]
